FAERS Safety Report 4872737-1 (Version None)
Quarter: 2006Q1

REPORT INFORMATION
  Report Type: 
  Country: None (occurrence: None)
  Receive Date: 20060103
  Receipt Date: 20051219
  Transmission Date: 20060701
  Serious: Yes (Hospitalization)
  Sender: FDA-Public Use
  Company Number: 200510617BYL

PATIENT
  Age: 75 Year
  Sex: Male
  Weight: 60 kg

DRUGS (11)
  1. ASPIRIN [Suspect]
     Indication: CARDIOVASCULAR EVENT PROPHYLAXIS
     Dosage: SEE IMAGE
     Route: 048
     Dates: start: 20050927, end: 20051020
  2. ASPIRIN [Suspect]
     Indication: MYOCARDIAL INFARCTION
     Dosage: SEE IMAGE
     Route: 048
     Dates: start: 20050927, end: 20051020
  3. ASPIRIN [Suspect]
     Indication: CARDIOVASCULAR EVENT PROPHYLAXIS
     Dosage: SEE IMAGE
     Route: 048
     Dates: start: 20051021, end: 20051128
  4. ASPIRIN [Suspect]
     Indication: MYOCARDIAL INFARCTION
     Dosage: SEE IMAGE
     Route: 048
     Dates: start: 20051021, end: 20051128
  5. PANALDINE [Concomitant]
  6. TANATRIL [Concomitant]
  7. PAXIL [Concomitant]
  8. WARFARIN [Concomitant]
  9. ACTOS [Concomitant]
  10. DEPAS [Concomitant]
  11. PURSENNIDE [Concomitant]

REACTIONS (4)
  - HYPOXIA [None]
  - INTERSTITIAL LUNG DISEASE [None]
  - LYMPHOCYTE STIMULATION TEST POSITIVE [None]
  - PNEUMONIA [None]
